FAERS Safety Report 4923458-8 (Version None)
Quarter: 2006Q1

REPORT INFORMATION
  Report Type: 
  Country: None (occurrence: None)
  Receive Date: 20060221
  Receipt Date: 20060221
  Transmission Date: 20060701
  Serious: Yes (Hospitalization)
  Sender: FDA-Public Use
  Company Number: MED-06006 & MED-06007

PATIENT
  Age: 37 Year
  Sex: Male

DRUGS (8)
  1. PREDNISONE TAB [Suspect]
     Indication: PROPHYLAXIS
     Dosage: 40-80MG QD PO
     Route: 048
     Dates: start: 19990101
  2. PREDNISONE TAB [Suspect]
     Indication: PULMONARY EMBOLISM
     Dosage: 40-80MG QD PO
     Route: 048
     Dates: start: 19990101
  3. FLUOXETINE HCL [Concomitant]
  4. ZOLPIDEM TARTRATE [Concomitant]
  5. ALPRAZOLAM [Concomitant]
  6. FLUTICASONE PROPIONATE [Concomitant]
  7. SALMETEROL XINAFOATE [Concomitant]
  8. ALBUTEROL [Concomitant]

REACTIONS (2)
  - OSTEONECROSIS [None]
  - PULMONARY EMBOLISM [None]
